FAERS Safety Report 8816973 (Version 1)
Quarter: 2012Q4

REPORT INFORMATION
  Report Type: Spontaneous
  Country: DK (occurrence: None)
  Receive Date: 20121002
  Receipt Date: 20121002
  Transmission Date: 20130627
  Serious: Yes (Other)
  Sender: FDA-Public Use
  Company Number: DK-1194344

PATIENT
  Age: 5 Month
  Sex: Female

DRUGS (1)
  1. MAXIDEX [Suspect]
     Indication: EYE INFLAMMATION
     Dosage: After schedule, 6x day for 3 weeks and outphasing Ophthalmic)
     Route: 047
     Dates: start: 20120620, end: 20120821

REACTIONS (1)
  - Adrenal insufficiency [None]
